FAERS Safety Report 6955820-6 (Version None)
Quarter: 2010Q3

REPORT INFORMATION
  Report Type: 
  Country: None (occurrence: None)
  Receive Date: 20100826
  Receipt Date: 20100826
  Transmission Date: 20110219
  Serious: Yes (Other)
  Sender: FDA-Public Use
  Company Number: None

PATIENT
  Sex: Female

DRUGS (1)
  1. DIVALPROEX SODIUM [Suspect]
     Indication: SLEEP DISORDER
     Dosage: 1 TABLET ONCE A DAY HS PO
     Route: 048
     Dates: start: 20100822, end: 20100823

REACTIONS (2)
  - HALLUCINATION [None]
  - INSOMNIA [None]
